FAERS Safety Report 20524883 (Version 1)
Quarter: 2022Q1

REPORT INFORMATION
  Report Type: Spontaneous
  Country: US (occurrence: None)
  Receive Date: 20220225
  Receipt Date: 20220225
  Transmission Date: 20220423
  Serious: No
  Sender: FDA-Public Use
  Company Number: None

PATIENT
  Age: 40 Year
  Sex: Male

DRUGS (1)
  1. LORBRENA [Suspect]
     Active Substance: LORLATINIB
     Dosage: FREQUENCY : DAILY;?
     Route: 048
     Dates: start: 202110

REACTIONS (1)
  - Hospitalisation [None]

NARRATIVE: CASE EVENT DATE: 20220225
